FAERS Safety Report 12877221 (Version 1)
Quarter: 2016Q4

REPORT INFORMATION
  Report Type: Spontaneous
  Country: US (occurrence: US)
  Receive Date: 20161021
  Receipt Date: 20161021
  Transmission Date: 20170207
  Serious: No
  Sender: FDA-Public Use
  Company Number: None

PATIENT
  Sex: Female

DRUGS (1)
  1. IMATINIB 400 MG TAB SUN PHARMA [Suspect]
     Active Substance: IMATINIB
     Route: 048
     Dates: start: 20160411

REACTIONS (5)
  - Headache [None]
  - Rash [None]
  - Balance disorder [None]
  - Product substitution issue [None]
  - Eye swelling [None]
